FAERS Safety Report 8201808-7 (Version None)
Quarter: 2012Q1

REPORT INFORMATION
  Report Type: 
  Country: None (occurrence: None)
  Receive Date: 20120312
  Receipt Date: 20120308
  Transmission Date: 20120608
  Serious: Yes (Death)
  Sender: FDA-Public Use
  Company Number: US-ROCHE-1047286

PATIENT
  Sex: Male

DRUGS (3)
  1. XELODA [Suspect]
     Indication: COLON CANCER
     Dosage: (21 DAYS CYCLE, 14 DAYS ON AND 7 DAYS OFF)
  2. AVASTIN [Suspect]
     Indication: COLON CANCER
  3. OXALIPLATIN [Concomitant]

REACTIONS (1)
  - DEATH [None]
